FAERS Safety Report 5403821-1 (Version None)
Quarter: 2007Q3

REPORT INFORMATION
  Report Type: 
  Country: None (occurrence: None)
  Receive Date: 20070731
  Receipt Date: 20070731
  Transmission Date: 20080115
  Serious: Yes (Hospitalization)
  Sender: FDA-Public Use
  Company Number: None

PATIENT
  Age: 47 Year
  Sex: Female
  Weight: 113.5 kg

DRUGS (17)
  1. XOLAIR [Suspect]
     Indication: ASTHMA
     Dosage: 375 MG
     Dates: start: 20070301, end: 20070726
  2. ADVAIR DISKUS 500/50 [Concomitant]
  3. ALBUTEROL NEBULIZATION [Concomitant]
  4. AMBIEN [Concomitant]
  5. EFFEXOR XR [Concomitant]
  6. FLOMAX [Concomitant]
  7. FLONASE [Concomitant]
  8. LANTUS [Concomitant]
  9. REGULAR INSULIN [Concomitant]
  10. HOME OXYGEN [Concomitant]
  11. PREDNISONE TAB [Concomitant]
  12. PREVACID [Concomitant]
  13. SINGULAIR [Concomitant]
  14. ZYFLO [Concomitant]
  15. ZYRTEC [Concomitant]
  16. KEPPRA [Concomitant]
  17. DOXYCYCLINE PLUS CIPROFLOXACIN [Concomitant]

REACTIONS (3)
  - CHEST DISCOMFORT [None]
  - DYSPNOEA [None]
  - WHEEZING [None]
